FAERS Safety Report 8816965 (Version 1)
Quarter: 2012Q4

REPORT INFORMATION
  Report Type: Spontaneous
  Country: US (occurrence: None)
  Receive Date: 20121003
  Receipt Date: 20121003
  Transmission Date: 20130627
  Serious: Yes (Other)
  Sender: FDA-Public Use
  Company Number: None

PATIENT
  Age: 44 Year
  Sex: Female
  Weight: 102.06 kg

DRUGS (1)
  1. SUMATRIPTAN [Suspect]
     Indication: MIGRAINE HEADACHE
     Dates: start: 20090101, end: 20090901

REACTIONS (7)
  - Fear [None]
  - Agitation [None]
  - Hallucination [None]
  - Thinking abnormal [None]
  - Suicidal ideation [None]
  - Vomiting [None]
  - Migraine [None]
